FAERS Safety Report 7394507-5 (Version None)
Quarter: 2011Q2

REPORT INFORMATION
  Report Type: 
  Country: None (occurrence: None)
  Receive Date: 20110405
  Receipt Date: 20110324
  Transmission Date: 20111010
  Serious: Yes (Other)
  Sender: FDA-Public Use
  Company Number: PHHY2011BR24368

PATIENT
  Sex: Female

DRUGS (4)
  1. SEROQUEL [Concomitant]
     Dosage: 5 ML, QD
  2. CITALOPRAM HYDROBROMIDE [Concomitant]
     Dosage: UNK
  3. LORAX [Concomitant]
     Dosage: UNK
  4. EXELON [Suspect]
     Dosage: 9 MG / 5CM2, UNK
     Route: 062

REACTIONS (7)
  - SOMNOLENCE [None]
  - BALANCE DISORDER [None]
  - FALL [None]
  - HALLUCINATION, VISUAL [None]
  - FEELING ABNORMAL [None]
  - DEMENTIA [None]
  - STUBBORNNESS [None]
